FAERS Safety Report 14512308 (Version 2)
Quarter: 2018Q1

REPORT INFORMATION
  Report Type: Spontaneous
  Country: FR (occurrence: FR)
  Receive Date: 20180209
  Receipt Date: 20180307
  Transmission Date: 20180509
  Serious: Yes (Other)
  Sender: FDA-Public Use
  Company Number: FR-SA-2018SA030271

PATIENT
  Age: 59 Year
  Sex: Male
  Weight: 77 kg

DRUGS (4)
  1. ECAZIDE [Concomitant]
     Route: 065
  2. DUPIXENT [Suspect]
     Active Substance: DUPILUMAB
     Indication: DERMATITIS ATOPIC
     Route: 058
     Dates: start: 20180104
  3. GARDENAL [Concomitant]
     Active Substance: PHENOBARBITAL
     Route: 065
  4. DUPIXENT [Suspect]
     Active Substance: DUPILUMAB
     Indication: DERMATITIS ATOPIC
     Route: 058
     Dates: start: 20180123

REACTIONS (4)
  - Asthma [Unknown]
  - Angioedema [Recovered/Resolved]
  - Asthma [Recovering/Resolving]
  - Swelling face [Recovered/Resolved]

NARRATIVE: CASE EVENT DATE: 20180123
